FAERS Safety Report 8291865-4 (Version None)
Quarter: 2012Q2

REPORT INFORMATION
  Report Type: 
  Country: None (occurrence: None)
  Receive Date: 20120413
  Receipt Date: 20120403
  Transmission Date: 20120825
  Serious: Yes (Disabling, Other)
  Sender: FDA-Public Use
  Company Number: 2012-1664

PATIENT
  Age: 55 Year
  Sex: Female
  Weight: 55 kg

DRUGS (1)
  1. DYSPORT [Suspect]
     Indication: SKIN COSMETIC PROCEDURE
     Dosage: 180 UNITS (180 UNITS, SINGLE CYCLE) INTRAMUSCULAR
     Route: 030
     Dates: start: 20110610, end: 20110610

REACTIONS (2)
  - HEPATITIS C [None]
  - CONDITION AGGRAVATED [None]
